FAERS Safety Report 10449515 (Version 2)
Quarter: 2014Q3

REPORT INFORMATION
  Report Type: Spontaneous
  Country: DE (occurrence: DE)
  Receive Date: 20140912
  Receipt Date: 20140922
  Transmission Date: 20150326
  Serious: Yes (Hospitalization, Other)
  Sender: FDA-Public Use
  Company Number: DE-BAYER-2014-135716

PATIENT
  Age: 32 Year
  Sex: Female

DRUGS (1)
  1. MIRENA [Suspect]
     Active Substance: LEVONORGESTREL
     Indication: CONTRACEPTION
     Dosage: 20 MCG/24HR, CONT
     Route: 015
     Dates: start: 20140102, end: 20140908

REACTIONS (5)
  - Abdominal pain lower [None]
  - Vaginal haemorrhage [None]
  - Ectopic pregnancy with contraceptive device [None]
  - Drug ineffective [None]
  - Intra-abdominal haemorrhage [None]

NARRATIVE: CASE EVENT DATE: 2014
